FAERS Safety Report 5021734-4 (Version None)
Quarter: 2006Q2

REPORT INFORMATION
  Report Type: 
  Country: None (occurrence: None)
  Receive Date: 20060605
  Receipt Date: 20060524
  Transmission Date: 20061013
  Serious: Yes (Hospitalization)
  Sender: FDA-Public Use
  Company Number: 221902

PATIENT
  Age: 60 Year
  Sex: Female
  Weight: 72.6 kg

DRUGS (3)
  1. AVASTIN [Suspect]
     Indication: BREAST CANCER METASTATIC
     Dosage: 10 MG/KG, DAYS 1+15, INTRAVENOUS
     Route: 042
     Dates: start: 20050906, end: 20060130
  2. TAXOL [Concomitant]
  3. DOXIL [Concomitant]

REACTIONS (16)
  - BLOOD PRESSURE INCREASED [None]
  - BONE PAIN [None]
  - COGNITIVE DISORDER [None]
  - CONSTIPATION [None]
  - DYSPEPSIA [None]
  - DYSPNOEA [None]
  - FATIGUE [None]
  - HEADACHE [None]
  - MIGRAINE [None]
  - NAUSEA [None]
  - PAIN IN JAW [None]
  - PHOTOPHOBIA [None]
  - PYREXIA [None]
  - STOMATITIS [None]
  - TOOTHACHE [None]
  - VOMITING [None]
